FAERS Safety Report 6085527-1 (Version None)
Quarter: 2009Q1

REPORT INFORMATION
  Report Type: 
  Country: None (occurrence: None)
  Receive Date: 20090220
  Receipt Date: 20090213
  Transmission Date: 20090719
  Serious: Yes (Life-Threatening, Hospitalization)
  Sender: FDA-Public Use
  Company Number: US-BAYER-200813852BCC

PATIENT
  Age: 68 Year
  Sex: Male
  Weight: 93 kg

DRUGS (11)
  1. ASPIRIN [Suspect]
     Indication: DRUG USE FOR UNKNOWN INDICATION
  2. PLAVIX [Suspect]
     Indication: DRUG USE FOR UNKNOWN INDICATION
     Dosage: UNIT DOSE: 75 MG
  3. COUMADIN [Suspect]
     Indication: DRUG USE FOR UNKNOWN INDICATION
  4. DILANTIN EXTENDED RELEASE [Concomitant]
  5. DILANTIN EXTENDED RELEASE [Concomitant]
  6. FOSAMAX [Concomitant]
  7. ATENOLOL [Concomitant]
  8. CALCIUM [Concomitant]
  9. PRILOSEC [Concomitant]
  10. VYTORIN [Concomitant]
  11. COMBIVENT [Concomitant]

REACTIONS (9)
  - APNOEA [None]
  - BRADYCARDIA [None]
  - DIZZINESS [None]
  - HYPERHIDROSIS [None]
  - MESOTHELIOMA MALIGNANT [None]
  - PALLOR [None]
  - PLEURAL EFFUSION [None]
  - PLEURAL HAEMORRHAGE [None]
  - SYNCOPE [None]
